FAERS Safety Report 11404425 (Version 1)
Quarter: 2015Q3

REPORT INFORMATION
  Report Type: Spontaneous
  Country: US (occurrence: US)
  Receive Date: 20150821
  Receipt Date: 20150821
  Transmission Date: 20151125
  Serious: No
  Sender: FDA-Public Use
  Company Number: US-AMGEN-USASP2015082852

PATIENT
  Age: 56 Year
  Sex: Female

DRUGS (17)
  1. BENTYL [Concomitant]
     Active Substance: DICYCLOMINE HYDROCHLORIDE
  2. ESTRADIOL. [Concomitant]
     Active Substance: ESTRADIOL
  3. NEURONTIN [Concomitant]
     Active Substance: GABAPENTIN
  4. LASIX [Concomitant]
     Active Substance: FUROSEMIDE
  5. GLUCOPHAGE [Concomitant]
     Active Substance: METFORMIN HYDROCHLORIDE
  6. NITROSTAT [Concomitant]
     Active Substance: NITROGLYCERIN
  7. TRAMADOL. [Concomitant]
     Active Substance: TRAMADOL
  8. ENBREL [Suspect]
     Active Substance: ETANERCEPT
     Indication: RHEUMATOID ARTHRITIS
     Dosage: UNK
     Route: 065
  9. ASPIRIN                            /00002701/ [Concomitant]
     Active Substance: ASPIRIN
  10. PREVACID [Concomitant]
     Active Substance: LANSOPRAZOLE
  11. PLAVIX [Concomitant]
     Active Substance: CLOPIDOGREL BISULFATE
  12. ADVAIR HFA [Concomitant]
     Active Substance: FLUTICASONE PROPIONATE\SALMETEROL XINAFOATE
  13. LEXAPRO [Concomitant]
     Active Substance: ESCITALOPRAM OXALATE
  14. KLOR-CON [Concomitant]
     Active Substance: POTASSIUM CHLORIDE
  15. HYZAAR [Concomitant]
     Active Substance: HYDROCHLOROTHIAZIDE\LOSARTAN POTASSIUM
  16. REQUIP [Concomitant]
     Active Substance: ROPINIROLE HYDROCHLORIDE
  17. TENORMIN [Concomitant]
     Active Substance: ATENOLOL

REACTIONS (6)
  - Discomfort [Unknown]
  - Liver disorder [Unknown]
  - Right aortic arch [Unknown]
  - Hypoaesthesia [Unknown]
  - Paraesthesia [Unknown]
  - Injection site pain [Unknown]
